FAERS Safety Report 23396742 (Version 2)
Quarter: 2024Q1

REPORT INFORMATION
  Report Type: Spontaneous
  Country: BR (occurrence: BR)
  Receive Date: 20240112
  Receipt Date: 20240226
  Transmission Date: 20240409
  Serious: Yes (Other)
  Sender: FDA-Public Use
  Company Number: BR-MYLANLABS-2024M1003325

PATIENT
  Age: 6 Decade
  Sex: Female

DRUGS (2)
  1. CISPLATIN [Suspect]
     Active Substance: CISPLATIN
     Indication: Non-small cell lung cancer stage IIIA
     Dosage: UNK, CYCLE, (ADJUVANT CYCLIC THERAPYFOR 4 CYCLE
     Route: 065
  2. PEMETREXED [Suspect]
     Active Substance: PEMETREXED
     Indication: Non-small cell lung cancer stage IIIA
     Dosage: UNK, CYCLE, (ADJUVANT CYCLIC THERAPYFOR 4 CYCLE
     Route: 065

REACTIONS (1)
  - Drug ineffective [Unknown]
